FAERS Safety Report 6107379-3 (Version None)
Quarter: 2009Q1

REPORT INFORMATION
  Report Type: 
  Country: None (occurrence: None)
  Receive Date: 20090227
  Receipt Date: 20080423
  Transmission Date: 20090719
  Serious: Yes (Hospitalization, Other)
  Sender: FDA-Public Use
  Company Number: RB-0931-2008

PATIENT
  Sex: Male
  Weight: 2.8 kg

DRUGS (3)
  1. SUBOXONE [Suspect]
     Indication: DRUG DEPENDENCE
     Dosage: 24 MG QD TRANSPLACENTAL, 24 MG QD TRANSPLACENTAL
     Route: 064
     Dates: start: 20061001, end: 20070801
  2. SUBOXONE [Suspect]
     Indication: DRUG DEPENDENCE
     Dosage: 24 MG QD TRANSPLACENTAL, 24 MG QD TRANSPLACENTAL
     Route: 064
     Dates: start: 20070901, end: 20071005
  3. SUBUTEX [Suspect]
     Indication: DRUG DEPENDENCE
     Dosage: 16 MG QD TRANSPLACENTAL
     Route: 064
     Dates: start: 20071005, end: 20080418

REACTIONS (2)
  - DRUG EXPOSURE DURING PREGNANCY [None]
  - DRUG WITHDRAWAL SYNDROME NEONATAL [None]
